FAERS Safety Report 12336080 (Version 1)
Quarter: 2016Q2

REPORT INFORMATION
  Report Type: Spontaneous
  Country: US (occurrence: None)
  Receive Date: 20160504
  Receipt Date: 20160504
  Transmission Date: 20160815
  Serious: Yes (Disabling, Other)
  Sender: FDA-Public Use
  Company Number: None

PATIENT
  Age: 68 Year
  Sex: Female
  Weight: 77.57 kg

DRUGS (10)
  1. ALENDRONATE SODIUM TABS USP 70MG, 70 MG [Suspect]
     Active Substance: ALENDRONATE SODIUM
     Indication: OSTEOPENIA
     Route: 048
     Dates: start: 20160425, end: 20160502
  2. SYMBICORT [Concomitant]
     Active Substance: BUDESONIDE\FORMOTEROL FUMARATE DIHYDRATE
  3. CALCIUM [Concomitant]
     Active Substance: CALCIUM
  4. VITAMIN D3 [Concomitant]
     Active Substance: CHOLECALCIFEROL
  5. CPAP MACHINE [Concomitant]
  6. BIOTIN [Concomitant]
     Active Substance: BIOTIN
  7. PROBIOTIC [Concomitant]
     Active Substance: PROBIOTICS NOS
  8. ANTIHISTAMINES [Concomitant]
     Active Substance: ANTIHISTAMINES NOS
  9. FLONASE [Concomitant]
     Active Substance: FLUTICASONE PROPIONATE
  10. PEPCID OTC [Concomitant]

REACTIONS (6)
  - Pain in jaw [None]
  - Spinal pain [None]
  - Muscular weakness [None]
  - Gastrooesophageal reflux disease [None]
  - Arthralgia [None]
  - Pain in extremity [None]

NARRATIVE: CASE EVENT DATE: 20160427
